FAERS Safety Report 16174856 (Version 4)
Quarter: 2019Q3

REPORT INFORMATION
  Report Type: Report from Study
  Country: GB (occurrence: GB)
  Receive Date: 20190409
  Receipt Date: 20190808
  Transmission Date: 20191004
  Serious: Yes (Other)
  Sender: FDA-Public Use
  Company Number: PHHY2019GB080619

PATIENT
  Age: 50 Year
  Sex: Female

DRUGS (2)
  1. ERELZI [Suspect]
     Active Substance: ETANERCEPT-SZZS
     Dosage: 50 MG, QW, PRE-FILLED PEN
     Route: 058
  2. ERELZI [Suspect]
     Active Substance: ETANERCEPT-SZZS
     Indication: PSORIATIC ARTHROPATHY
     Dosage: 50 MG, QW, PRE-FILLED PEN
     Route: 058
     Dates: start: 20190214

REACTIONS (9)
  - Peripheral swelling [Unknown]
  - Incorrect dose administered [Unknown]
  - Fatigue [Unknown]
  - Drug ineffective [Unknown]
  - Injection site pain [Unknown]
  - Pain in extremity [Unknown]
  - Product storage error [Unknown]
  - Psoriatic arthropathy [Unknown]
  - Wrong technique in product usage process [Unknown]

NARRATIVE: CASE EVENT DATE: 20190404
